FAERS Safety Report 13451872 (Version 1)
Quarter: 2017Q2

REPORT INFORMATION
  Report Type: Report from Study
  Country: US (occurrence: US)
  Receive Date: 20170418
  Receipt Date: 20170418
  Transmission Date: 20170830
  Serious: Yes (Other)
  Sender: FDA-Public Use
  Company Number: PHEH2017US010684

PATIENT
  Sex: Female
  Weight: 87.8 kg

DRUGS (3)
  1. COSENTYX [Suspect]
     Active Substance: SECUKINUMAB
     Indication: PSORIATIC ARTHROPATHY
     Dosage: 150 MG, QMO
     Route: 058
     Dates: start: 20160520
  2. COSENTYX [Suspect]
     Active Substance: SECUKINUMAB
     Indication: SPONDYLOARTHROPATHY
  3. IBUPROFEN. [Concomitant]
     Active Substance: IBUPROFEN
     Indication: PRODUCT USED FOR UNKNOWN INDICATION
     Dosage: 800 MG, (1-3 DAYS A WEEK)
     Route: 065
     Dates: start: 20160101

REACTIONS (1)
  - Tooth abscess [Unknown]

NARRATIVE: CASE EVENT DATE: 20170120
